FAERS Safety Report 5127423-X (Version None)
Quarter: 2006Q4

REPORT INFORMATION
  Report Type: 
  Country: None (occurrence: None)
  Receive Date: 20061013
  Receipt Date: 20061013
  Transmission Date: 20070319
  Serious: Yes (Life-Threatening, Hospitalization)
  Sender: FDA-Public Use
  Company Number: None

PATIENT
  Age: 42 Year
  Sex: Male
  Weight: 101.1521 kg

DRUGS (1)
  1. PHENERGAN [Suspect]
     Indication: NAUSEA
     Dosage: 25 MG ONCE IV PUSH IN WRIST
     Route: 042
     Dates: start: 20060831

REACTIONS (4)
  - DEEP VEIN THROMBOSIS [None]
  - INJECTION SITE ERYTHEMA [None]
  - INJECTION SITE IRRITATION [None]
  - INJECTION SITE THROMBOSIS [None]
